FAERS Safety Report 4680894-5 (Version None)
Quarter: 2005Q2

REPORT INFORMATION
  Report Type: 
  Country: None (occurrence: None)
  Receive Date: 20050603
  Receipt Date: 20050527
  Transmission Date: 20051028
  Serious: Yes (Hospitalization)
  Sender: FDA-Public Use
  Company Number: 200511820FR

PATIENT
  Age: 59 Year
  Sex: Male

DRUGS (15)
  1. LOVENOX [Suspect]
     Route: 058
     Dates: start: 20041116, end: 20050111
  2. ORBENINE [Concomitant]
     Route: 042
     Dates: start: 20041207, end: 20041209
  3. GENTAMYCIN SULFATE [Concomitant]
     Dates: start: 20041207, end: 20041211
  4. ROCEPHIN [Concomitant]
     Dates: start: 20041211, end: 20050101
  5. OFLOCET [Concomitant]
     Route: 048
     Dates: start: 20041211, end: 20050117
  6. PREVISCAN [Concomitant]
     Route: 048
     Dates: start: 20041105, end: 20041128
  7. LIPANOR [Concomitant]
     Route: 048
  8. AMARYL [Concomitant]
     Route: 048
  9. COAPROVEL [Concomitant]
     Route: 048
  10. GLUCOPHAGE [Concomitant]
     Route: 048
  11. OMEPRAZOLE [Concomitant]
     Route: 048
  12. FUMAFER [Concomitant]
     Route: 048
  13. PARACETAMOL [Concomitant]
  14. TRAMADOL HCL [Concomitant]
  15. BI-PROFENID [Concomitant]
     Route: 048

REACTIONS (6)
  - ARTERIAL THROMBOSIS [None]
  - ARTERIOPATHIC DISEASE [None]
  - LEG AMPUTATION [None]
  - NECROSIS [None]
  - PERIPHERAL ISCHAEMIA [None]
  - THROMBOCYTHAEMIA [None]
